FAERS Safety Report 14201620 (Version 1)
Quarter: 2017Q4

REPORT INFORMATION
  Report Type: Spontaneous
  Country: US (occurrence: US)
  Receive Date: 20171117
  Receipt Date: 20171117
  Transmission Date: 20180321
  Serious: No
  Sender: FDA-Public Use
  Company Number: US-PERRIGO-17US027310

PATIENT
  Age: 64 Year
  Sex: Female
  Weight: 64.4 kg

DRUGS (3)
  1. ENALAPRIL [Concomitant]
     Active Substance: ENALAPRIL
     Indication: HYPERTENSION
     Dosage: UNKNOWN, UNKNOWN
     Route: 065
  2. ZANTAC [Concomitant]
     Active Substance: RANITIDINE HYDROCHLORIDE
     Indication: HERNIA
     Dosage: UNKNOWN, UNKNOWN
     Route: 065
  3. POLYETHYLENE GLYCOL 3350. [Suspect]
     Active Substance: POLYETHYLENE GLYCOL 3350
     Indication: CONSTIPATION
     Dosage: 17 G, TID
     Route: 048
     Dates: start: 201505, end: 201509

REACTIONS (6)
  - Overdose [Recovered/Resolved]
  - Gallbladder disorder [Recovered/Resolved]
  - Inappropriate schedule of drug administration [Recovered/Resolved]
  - Gallbladder operation [Recovered/Resolved]
  - Incorrect drug administration duration [Recovered/Resolved]
  - Weight decreased [Recovered/Resolved]

NARRATIVE: CASE EVENT DATE: 201505
